FAERS Safety Report 6841400-X (Version None)
Quarter: 2010Q3

REPORT INFORMATION
  Report Type: 
  Country: None (occurrence: None)
  Receive Date: 20100714
  Receipt Date: 20070703
  Transmission Date: 20110219
  Serious: No
  Sender: FDA-Public Use
  Company Number: US-PFIZER INC-2007056512

PATIENT
  Sex: Female
  Weight: 75 kg

DRUGS (3)
  1. CHANTIX [Suspect]
     Indication: SMOKING CESSATION THERAPY
     Dates: start: 20070630, end: 20070702
  2. IMIPRAMINE [Concomitant]
  3. DULOXETINE HYDROCHLORIDE [Concomitant]

REACTIONS (2)
  - BURN OESOPHAGEAL [None]
  - INSOMNIA [None]
